FAERS Safety Report 23976918 (Version 2)
Quarter: 2024Q3

REPORT INFORMATION
  Report Type: Report from Study
  Country: US (occurrence: US)
  Receive Date: 20240614
  Receipt Date: 20240813
  Transmission Date: 20241017
  Serious: Yes (Other)
  Sender: OTSUKA
  Company Number: US-OTSUKA-2024_016526

PATIENT
  Sex: Male
  Weight: 89.36 kg

DRUGS (1)
  1. CEDAZURIDINE\DECITABINE [Suspect]
     Active Substance: CEDAZURIDINE\DECITABINE
     Indication: Myelodysplastic syndrome
     Dosage: 1 DF (35 MG OF DECITABINE AND 100 MG OF CEDAZURIDINE), QD ON1-5 DAYS OF 28 DAY CYCLE (CYCLE 17)
     Route: 065
     Dates: start: 202209

REACTIONS (2)
  - Transfusion [Not Recovered/Not Resolved]
  - Drug ineffective [Not Recovered/Not Resolved]
